FAERS Safety Report 25625562 (Version 1)
Quarter: 2025Q3

REPORT INFORMATION
  Report Type: Spontaneous
  Country: US (occurrence: US)
  Receive Date: 20250731
  Receipt Date: 20250731
  Transmission Date: 20251020
  Serious: Yes (Other)
  Sender: PHARMOBEDIENT CONSULTING, LLC
  Company Number: US-Pharmobedient-000004

PATIENT
  Age: 18 Year
  Sex: Male

DRUGS (6)
  1. ZONISAMIDE [Suspect]
     Active Substance: ZONISAMIDE
     Indication: Seizure
     Dosage: TITRATED TO 200 MG
  2. CANNABIDIOL [Concomitant]
     Active Substance: CANNABIDIOL
     Indication: Epilepsy
  3. CLOBAZAM [Concomitant]
     Active Substance: CLOBAZAM
     Indication: Epilepsy
  4. FENFLURAMINE [Concomitant]
     Active Substance: FENFLURAMINE
     Indication: Epilepsy
  5. LEVETIRACETAM [Concomitant]
     Active Substance: LEVETIRACETAM
     Indication: Epilepsy
  6. PERAMPANEL [Concomitant]
     Active Substance: PERAMPANEL
     Indication: Epilepsy

REACTIONS (1)
  - Withdrawal catatonia [Not Recovered/Not Resolved]
